FAERS Safety Report 8344930-7 (Version None)
Quarter: 2012Q2

REPORT INFORMATION
  Report Type: 
  Country: None (occurrence: None)
  Receive Date: 20120508
  Receipt Date: 20120503
  Transmission Date: 20120825
  Serious: Yes (Other)
  Sender: FDA-Public Use
  Company Number: ES-MERCK-1205ESP00003

PATIENT
  Age: 20 Month
  Sex: Male

DRUGS (3)
  1. LEVETIRACETAM [Suspect]
     Indication: ENCEPHALOPATHY
     Route: 048
  2. LEVETIRACETAM [Suspect]
     Indication: CONVULSION
     Route: 048
  3. SINGULAIR [Suspect]
     Route: 048
     Dates: end: 20120401

REACTIONS (2)
  - DRUG INTERACTION [None]
  - CONVULSION [None]
